FAERS Safety Report 10470440 (Version 3)
Quarter: 2015Q2

REPORT INFORMATION
  Report Type: Spontaneous
  Country: US (occurrence: US)
  Receive Date: 20140923
  Receipt Date: 20150626
  Transmission Date: 20150821
  Serious: Yes (Death, Hospitalization, Other)
  Sender: FDA-Public Use
  Company Number: US-MERCK-1409USA010757

PATIENT
  Sex: Male
  Weight: 86.17 kg

DRUGS (1)
  1. JANUVIA [Suspect]
     Active Substance: SITAGLIPTIN PHOSPHATE
     Indication: TYPE 2 DIABETES MELLITUS
     Dosage: 100 MG, QD
     Route: 048
     Dates: start: 20111113, end: 20130826

REACTIONS (25)
  - Small intestine carcinoma metastatic [Unknown]
  - Knee arthroplasty [Unknown]
  - Hypertension [Unknown]
  - Candida infection [Unknown]
  - Goitre [Unknown]
  - Hernia repair [Unknown]
  - Upper gastrointestinal haemorrhage [Unknown]
  - Biliary dilatation [Unknown]
  - Intestinal obstruction [Unknown]
  - Insulin-requiring type 2 diabetes mellitus [Unknown]
  - Acute kidney injury [Recovered/Resolved]
  - Depression [Unknown]
  - Arteriosclerosis coronary artery [Unknown]
  - Dehydration [Unknown]
  - Renal cancer [Unknown]
  - Chronic kidney disease [Not Recovered/Not Resolved]
  - Hyperosmolar hyperglycaemic state [Unknown]
  - Hypotension [Unknown]
  - Thyroid disorder [Unknown]
  - Adenocarcinoma pancreas [Fatal]
  - Metastases to liver [Unknown]
  - Anxiety [Unknown]
  - Anaemia [Unknown]
  - Hyperlipidaemia [Unknown]
  - Sleep apnoea syndrome [Unknown]

NARRATIVE: CASE EVENT DATE: 20130805
